FAERS Safety Report 24591056 (Version 1)
Quarter: 2024Q4

REPORT INFORMATION
  Report Type: Spontaneous
  Country: CN (occurrence: CN)
  Receive Date: 20241107
  Receipt Date: 20241107
  Transmission Date: 20250114
  Serious: Yes (Hospitalization, Other)
  Sender: SANOFI AVENTIS
  Company Number: CN-SA-2024SA315916

PATIENT
  Age: 66 Year
  Sex: Female
  Weight: 35 kg

DRUGS (1)
  1. OXALIPLATIN [Suspect]
     Active Substance: OXALIPLATIN
     Indication: Chemotherapy
     Dosage: 50 MG, QD
     Route: 013
     Dates: start: 20240920, end: 20240920

REACTIONS (9)
  - Loss of consciousness [Recovering/Resolving]
  - Shock [Recovering/Resolving]
  - Oxygen saturation decreased [Recovering/Resolving]
  - Respiration abnormal [Recovering/Resolving]
  - Abdominal discomfort [Recovering/Resolving]
  - Nausea [Recovering/Resolving]
  - Blood pressure decreased [Recovering/Resolving]
  - Heart rate increased [Recovering/Resolving]
  - Pulse abnormal [Recovering/Resolving]

NARRATIVE: CASE EVENT DATE: 20240920
